FAERS Safety Report 22309521 (Version 1)
Quarter: 2023Q2

REPORT INFORMATION
  Report Type: Spontaneous
  Country: CA (occurrence: CA)
  Receive Date: 20230511
  Receipt Date: 20230511
  Transmission Date: 20230722
  Serious: Yes (Life-Threatening, Hospitalization)
  Sender: FDA-Public Use
  Company Number: CA-FreseniusKabi-FK202306166

PATIENT
  Age: 67 Year
  Sex: Female

DRUGS (8)
  1. DIPHENHYDRAMINE [Suspect]
     Active Substance: DIPHENHYDRAMINE
     Indication: Angioedema
     Route: 042
  2. EPINEPHRINE [Suspect]
     Active Substance: EPINEPHRINE
     Indication: Angioedema
  3. HUMAN C1-ESTERASE INHIBITOR [Suspect]
     Active Substance: HUMAN C1-ESTERASE INHIBITOR
     Indication: Angioedema
     Dosage: DOSE: 1500.0 IU
  4. HUMAN C1-ESTERASE INHIBITOR [Suspect]
     Active Substance: HUMAN C1-ESTERASE INHIBITOR
     Dosage: DOSE: 1000.0 IU
  5. ICATIBANT ACETATE [Suspect]
     Active Substance: ICATIBANT ACETATE
     Indication: Angioedema
     Route: 058
  6. METHYLPREDNISOLONE [Suspect]
     Active Substance: METHYLPREDNISOLONE
     Indication: Angioedema
     Route: 042
  7. RAMIPRIL [Suspect]
     Active Substance: RAMIPRIL
     Indication: Hypertension
     Dosage: DOSAGE FORM: NOT SPECIFIED
  8. PERINDOPRIL [Concomitant]
     Active Substance: PERINDOPRIL
     Indication: Hypertension
     Route: 065

REACTIONS (2)
  - Angioedema [Recovered/Resolved]
  - Off label use [Recovered/Resolved]
